FAERS Safety Report 7086251 (Version 7)
Quarter: 2012Q4

REPORT INFORMATION
  Report Type: 
  Country: CA (occurrence: CA)
  Receive Date: 20090820
  Receipt Date: 20121101
  Transmission Date: 20130627
  Serious: Yes (Other)
  Sender: FDA-Public Use
  Company Number: PHHY2009CA28530

PATIENT
  Sex: Female

DRUGS (7)
  1. SANDOSTATIN LAR [Suspect]
     Indication: ACROMEGALY
     Dosage: 10 mg every 4 weeks
     Route: 030
     Dates: start: 19990901
  2. DOSTINEX [Concomitant]
     Dosage: 0.5 mg, QW
  3. SERC [Concomitant]
     Dosage: 8 mg, PRN
  4. PREVACID [Concomitant]
  5. TRIAZIDE [Concomitant]
  6. NORVASC [Concomitant]
     Dosage: 5 mg, QD
  7. CAD [Concomitant]

REACTIONS (6)
  - Depressive symptom [Not Recovered/Not Resolved]
  - Heart rate decreased [Not Recovered/Not Resolved]
  - Dizziness [Not Recovered/Not Resolved]
  - Cough [Not Recovered/Not Resolved]
  - Anxiety [Unknown]
  - Blood pressure systolic increased [Unknown]
